FAERS Safety Report 8956952 (Version 1)
Quarter: 2012Q4

REPORT INFORMATION
  Report Type: 
  Country: AU (occurrence: AU)
  Receive Date: 20121211
  Receipt Date: 20121211
  Transmission Date: 20130627
  Serious: Yes (Death)
  Sender: FDA-Public Use
  Company Number: AU-B.I. PHARMACEUTICALS,INC./RIDGEFIELD-2012-AU-01956AU

PATIENT
  Age: 64 Year
  Sex: Male

DRUGS (7)
  1. PRADAXA [Suspect]
     Indication: CEREBROVASCULAR ACCIDENT PROPHYLAXIS
     Dosage: 300 mg
     Dates: start: 20110803, end: 20121008
  2. PRADAXA [Suspect]
     Indication: ATRIAL FIBRILLATION
  3. ATORVASTATIN [Concomitant]
     Dosage: 40 mg
  4. COVERSYL PLUS [Concomitant]
     Dosage: 5/2.5
  5. METOPROLOL [Concomitant]
     Dosage: 100 mg
  6. PROGOUT [Concomitant]
     Dosage: 200 mg
  7. VALPROATE [Concomitant]
     Dosage: 800 mg

REACTIONS (1)
  - Intestinal obstruction [Fatal]
